FAERS Safety Report 8500900-7 (Version None)
Quarter: 2012Q3

REPORT INFORMATION
  Report Type: 
  Country: None (occurrence: None)
  Receive Date: 20120710
  Receipt Date: 20120703
  Transmission Date: 20120928
  Serious: Yes (Disabling, Other)
  Sender: FDA-Public Use
  Company Number: PHHY2012CH049984

PATIENT
  Sex: Male

DRUGS (2)
  1. CYMBALTA [Concomitant]
     Dosage: 60 MG, UNK
     Route: 048
  2. GILENYA [Suspect]
     Indication: RELAPSING-REMITTING MULTIPLE SCLEROSIS
     Dosage: UNK UKN, UNK
     Route: 048
     Dates: start: 20120229, end: 20120701

REACTIONS (7)
  - EYE MOVEMENT DISORDER [None]
  - SENSORIMOTOR DISORDER [None]
  - PROGRESSIVE MULTIPLE SCLEROSIS [None]
  - MYELITIS [None]
  - CENTRAL NERVOUS SYSTEM LESION [None]
  - DRUG INEFFECTIVE [None]
  - COGNITIVE DISORDER [None]
